FAERS Safety Report 20429955 (Version 1)
Quarter: 2022Q1

REPORT INFORMATION
  Report Type: Report from Study
  Country: US (occurrence: US)
  Receive Date: 20220204
  Receipt Date: 20220204
  Transmission Date: 20220423
  Serious: Yes (Life-Threatening, Hospitalization)
  Sender: FDA-Public Use
  Company Number: US-SERVIER-S19003966

PATIENT

DRUGS (4)
  1. ONCASPAR [Suspect]
     Active Substance: PEGASPARGASE
     Indication: T-cell type acute leukaemia
     Dosage: 2500 IU/M2, ONE DOSE
     Route: 042
     Dates: start: 20190301, end: 20190301
  2. DEXAMETHASONE PHOSPHATE [Suspect]
     Active Substance: DEXAMETHASONE PHOSPHATE
     Indication: T-cell type acute leukaemia
     Dosage: 6 MG/M2,DAYS 1-10 OF EACH 3-WEEK CYCLE
     Route: 042
     Dates: start: 20190224, end: 20190325
  3. VINCRISTINE SULFATE [Suspect]
     Active Substance: VINCRISTINE SULFATE
     Indication: T-cell type acute leukaemia
     Dosage: 1.5 MG/M2, ONE DOSE
     Route: 042
     Dates: start: 20190327, end: 20190327
  4. CYTARABINE [Suspect]
     Active Substance: CYTARABINE
     Indication: T-cell type acute leukaemia
     Dosage: 40 MG, ON DAY 1
     Route: 037
     Dates: start: 20190222, end: 20190313

REACTIONS (1)
  - Psychotic disorder [Recovered/Resolved]

NARRATIVE: CASE EVENT DATE: 20190403
